FAERS Safety Report 20781654 (Version 1)
Quarter: 2022Q2

REPORT INFORMATION
  Report Type: Spontaneous
  Country: US (occurrence: US)
  Receive Date: 20220504
  Receipt Date: 20220504
  Transmission Date: 20220721
  Serious: No
  Sender: FDA-Public Use
  Company Number: US-BRISTOL-MYERS SQUIBB COMPANY-2022-019555

PATIENT
  Sex: Female

DRUGS (1)
  1. REVLIMID [Suspect]
     Active Substance: LENALIDOMIDE
     Indication: Plasma cell myeloma
     Dosage: FREQUENCY : TAKE 1 CAPSULE  BY MOUTH EVERY DAY ON DAYS 1-14 OF A 21 DAY CYCLE.
     Route: 048
     Dates: start: 20200930

REACTIONS (1)
  - Platelet count decreased [Not Recovered/Not Resolved]
